FAERS Safety Report 11717816 (Version 16)
Quarter: 2019Q1

REPORT INFORMATION
  Report Type: Spontaneous
  Country: US (occurrence: US)
  Receive Date: 20151110
  Receipt Date: 20190326
  Transmission Date: 20190417
  Serious: Yes (Other)
  Sender: FDA-Public Use
  Company Number: PHEH2015US022849

PATIENT
  Sex: Female
  Weight: 45.35 kg

DRUGS (7)
  1. ONDANSETRON [Suspect]
     Active Substance: ONDANSETRON
     Indication: PRODUCT USED FOR UNKNOWN INDICATION
     Route: 048
  2. ONDANSETRON DR REDDY [Suspect]
     Active Substance: ONDANSETRON
     Indication: MORNING SICKNESS
     Dosage: 4 MG, THREE TO FOUR TIME DAILY
     Route: 065
     Dates: start: 20111026, end: 20120127
  3. ONDANSETRON. [Suspect]
     Active Substance: ONDANSETRON
     Indication: MORNING SICKNESS
     Dosage: 4 MG
     Route: 048
     Dates: start: 20120205, end: 20120410
  4. ONDANSETRON. [Suspect]
     Active Substance: ONDANSETRON
     Indication: MORNING SICKNESS
     Dosage: 8 MG, QID
     Route: 065
     Dates: start: 20110902, end: 20110906
  5. ZOFRAN [Suspect]
     Active Substance: ONDANSETRON HYDROCHLORIDE
     Indication: MORNING SICKNESS
     Dosage: 4 MG, UNK
     Route: 048
     Dates: start: 201112, end: 201204
  6. ZOFRAN [Suspect]
     Active Substance: ONDANSETRON HYDROCHLORIDE
     Indication: MORNING SICKNESS
     Dosage: 04 MG, Q4H
     Route: 042
  7. ONDANSETRON [Suspect]
     Active Substance: ONDANSETRON
     Indication: PRODUCT USED FOR UNKNOWN INDICATION
     Route: 048

REACTIONS (11)
  - Vaginal haemorrhage [Unknown]
  - Injury [Unknown]
  - Maternal exposure during pregnancy [Unknown]
  - Placenta praevia [Unknown]
  - Pain [Unknown]
  - Product use in unapproved indication [Unknown]
  - Influenza [Unknown]
  - Anxiety [Unknown]
  - Emotional distress [Unknown]
  - Premature delivery [Unknown]
  - Vulvovaginitis [Unknown]
